FAERS Safety Report 20348766 (Version 1)
Quarter: 2022Q1

REPORT INFORMATION
  Report Type: Spontaneous
  Country: FR (occurrence: FR)
  Receive Date: 20220119
  Receipt Date: 20220119
  Transmission Date: 20220423
  Serious: Yes (Hospitalization, Other)
  Sender: FDA-Public Use
  Company Number: FR-AFSSAPS-DJ20220030

PATIENT
  Age: 79 Year
  Sex: Male
  Weight: 85.5 kg

DRUGS (4)
  1. DROPERIDOL [Suspect]
     Active Substance: DROPERIDOL
     Indication: Prophylaxis of nausea and vomiting
     Dosage: 1.25 MILLIGRAM/MILILITER
     Route: 040
     Dates: start: 20210927
  2. NICARDIPINE [Suspect]
     Active Substance: NICARDIPINE
     Indication: Postoperative hypertension
     Dosage: 1 MILLIGRAM/MILILITER
     Route: 040
     Dates: start: 20210927
  3. ACETAMINOPHEN [Suspect]
     Active Substance: ACETAMINOPHEN
     Indication: Pain
     Dosage: 10 MILLIGRAM/MILILITER
     Route: 040
     Dates: start: 20210927
  4. CARBOCAINE [Suspect]
     Active Substance: MEPIVACAINE HYDROCHLORIDE
     Indication: Anaesthesia
     Dosage: 20 MILLIGRAM/MILILITER
     Route: 053
     Dates: start: 20210927

REACTIONS (1)
  - Pancreatitis [Recovered/Resolved]

NARRATIVE: CASE EVENT DATE: 20210928
